FAERS Safety Report 10195271 (Version 2)
Quarter: 2014Q2

REPORT INFORMATION
  Report Type: Spontaneous
  Country: FR (occurrence: FR)
  Receive Date: 20140526
  Receipt Date: 20140619
  Transmission Date: 20141212
  Serious: Yes (Life-Threatening, Hospitalization)
  Sender: FDA-Public Use
  Company Number: FR-JNJFOC-20140512717

PATIENT
  Age: 91 Year
  Sex: Male

DRUGS (10)
  1. XARELTO [Suspect]
     Indication: PRODUCT USED FOR UNKNOWN INDICATION
     Route: 048
  2. LACTULOSE [Concomitant]
     Route: 065
  3. CHIBRO-PROSCAR [Concomitant]
     Route: 065
  4. LASILIX [Concomitant]
     Route: 048
  5. IXPRIM [Concomitant]
     Route: 065
  6. CHONDROSULF [Concomitant]
     Route: 065
  7. TRIATEC [Concomitant]
     Route: 048
  8. LYRICA [Concomitant]
     Route: 065
  9. TEMERIT [Concomitant]
     Route: 048
  10. MELAXOSE [Concomitant]
     Route: 065

REACTIONS (7)
  - Cerebral haematoma [Unknown]
  - Cerebellar syndrome [Unknown]
  - Nausea [Unknown]
  - Vertigo [Unknown]
  - Ataxia [Unknown]
  - VIIth nerve paralysis [Unknown]
  - Cerebral haemorrhage [Unknown]
